FAERS Safety Report 23563919 (Version 2)
Quarter: 2024Q2

REPORT INFORMATION
  Report Type: Report from Study
  Country: US (occurrence: US)
  Receive Date: 20240226
  Receipt Date: 20240512
  Transmission Date: 20240715
  Serious: No
  Sender: FDA-Public Use
  Company Number: US-AstraZeneca-CH-00570451A

PATIENT
  Sex: Male

DRUGS (1)
  1. ULTOMIRIS [Suspect]
     Active Substance: RAVULIZUMAB-CWVZ
     Indication: Myasthenia gravis
     Dosage: UNK
     Route: 065

REACTIONS (7)
  - Diplopia [Unknown]
  - Vision blurred [Unknown]
  - Gait disturbance [Unknown]
  - Pain in extremity [Unknown]
  - Dyspnoea [Unknown]
  - Bone pain [Unknown]
  - Musculoskeletal stiffness [Unknown]
